FAERS Safety Report 12920936 (Version 1)
Quarter: 2016Q4

REPORT INFORMATION
  Report Type: Report from Study
  Country: CA (occurrence: CA)
  Receive Date: 20161107
  Receipt Date: 20161107
  Transmission Date: 20170207
  Serious: Yes (Congenital Anomaly)
  Sender: FDA-Public Use
  Company Number: CA-UCBSA-2016041661

PATIENT
  Age: 0 Year
  Sex: Female
  Weight: 3.2 kg

DRUGS (3)
  1. CERTOLIZUMAB PEGOL ASP [Suspect]
     Active Substance: CERTOLIZUMAB PEGOL
     Dosage: 200 MG, EV 3-4 WEEKS
     Route: 064
     Dates: start: 20151222, end: 20160517
  2. CERTOLIZUMAB PEGOL ASP [Suspect]
     Active Substance: CERTOLIZUMAB PEGOL
     Indication: ANKYLOSING SPONDYLITIS
     Dosage: 400 MG, EV 2 WEEKS(QOW)
     Route: 064
     Dates: start: 20150823, end: 20150827
  3. CERTOLIZUMAB PEGOL ASP [Suspect]
     Active Substance: CERTOLIZUMAB PEGOL
     Dosage: 200 MG, EV 2 WEEKS(QOW)
     Route: 064
     Dates: start: 20150910, end: 20151003

REACTIONS (3)
  - Foetal exposure during pregnancy [Unknown]
  - Ankyloglossia congenital [Recovered/Resolved]
  - Facial wasting [Recovered/Resolved]

NARRATIVE: CASE EVENT DATE: 20150823
